FAERS Safety Report 11705275 (Version 1)
Quarter: 2015Q4

REPORT INFORMATION
  Report Type: Spontaneous
  Country: US (occurrence: US)
  Receive Date: 20151106
  Receipt Date: 20151106
  Transmission Date: 20160304
  Serious: No
  Sender: FDA-Public Use
  Company Number: US-BAYER-2015-462747

PATIENT
  Age: 84 Year
  Sex: Female
  Weight: 79.37 kg

DRUGS (4)
  1. LEVOTHROID [Concomitant]
     Active Substance: LEVOTHYROXINE SODIUM
     Dosage: UNK
  2. TRIAM [Concomitant]
     Active Substance: TRIAMCINOLONE
     Dosage: UNK
  3. ANASTROZOLE. [Concomitant]
     Active Substance: ANASTROZOLE
     Dosage: UNK
  4. OXYTROL FOR WOMEN [Suspect]
     Active Substance: OXYBUTYNIN
     Indication: HYPERTONIC BLADDER
     Dosage: 1 DOSE ONCE EVERY 4 DAYS,
     Route: 061
     Dates: start: 201312

REACTIONS (1)
  - Device ineffective [None]
